FAERS Safety Report 8613991-X (Version None)
Quarter: 2012Q3

REPORT INFORMATION
  Report Type: 
  Country: None (occurrence: None)
  Receive Date: 20120823
  Receipt Date: 20120820
  Transmission Date: 20120928
  Serious: Yes (Other)
  Sender: FDA-Public Use
  Company Number: US-PFIZER INC-2012204896

PATIENT
  Sex: Male

DRUGS (1)
  1. SUTENT [Suspect]
     Dosage: CYCLIC (50 MG DAILY FOR 4 WEEKS FOLLOWED BY 2 WEEKS OF OFF THERAPY)

REACTIONS (1)
  - PANCREATITIS ACUTE [None]
